FAERS Safety Report 5030482-6 (Version None)
Quarter: 2006Q2

REPORT INFORMATION
  Report Type: 
  Country: None (occurrence: None)
  Receive Date: 20060614
  Receipt Date: 20060529
  Transmission Date: 20061013
  Serious: Yes (Other)
  Sender: FDA-Public Use
  Company Number: 225797

PATIENT
  Sex: Male

DRUGS (4)
  1. AVASTIN [Suspect]
     Indication: COLORECTAL CANCER
  2. FLUOROURACIL [Concomitant]
  3. LEUCOVORIN CALCIUM [Concomitant]
  4. OXALIPLATIN [Concomitant]

REACTIONS (6)
  - ASCITES [None]
  - BLOOD DISORDER [None]
  - CYTOMEGALOVIRUS INFECTION [None]
  - LUNG DISORDER [None]
  - PORTAL HYPERTENSION [None]
  - SPLENOMEGALY [None]
